FAERS Safety Report 9212704 (Version 1)
Quarter: 2013Q2

REPORT INFORMATION
  Report Type: Spontaneous
  Country: NL (occurrence: NL)
  Receive Date: 20130405
  Receipt Date: 20130405
  Transmission Date: 20140414
  Serious: Yes (Other)
  Sender: FDA-Public Use
  Company Number: NL-GE HEALTHCARE MEDICAL DIAGNOSTICS-M123-PR-1303L-0005

PATIENT
  Age: 1 Month
  Sex: 0

DRUGS (5)
  1. ADREVIEW [Suspect]
     Indication: NEUROBLASTOMA
     Route: 065
  2. ADREVIEW [Suspect]
     Indication: DIAGNOSTIC PROCEDURE
  3. THYROXINE [Concomitant]
     Route: 048
  4. METHIMAZOLE [Concomitant]
     Route: 048
  5. POTASSIUM IODIDE [Concomitant]
     Route: 048

REACTIONS (1)
  - Thyroid disorder [Recovered/Resolved]
